FAERS Safety Report 15648565 (Version 3)
Quarter: 2019Q1

REPORT INFORMATION
  Report Type: Spontaneous
  Country: US (occurrence: US)
  Receive Date: 20181122
  Receipt Date: 20190307
  Transmission Date: 20190417
  Serious: No
  Sender: FDA-Public Use
  Company Number: US-BRISTOL-MYERS SQUIBB COMPANY-BMS-2018-109544

PATIENT
  Sex: Female
  Weight: 74.83 kg

DRUGS (1)
  1. ORENCIA [Suspect]
     Active Substance: ABATACEPT
     Indication: RHEUMATOID ARTHRITIS
     Dosage: 750 MG, Q4WK
     Route: 042
     Dates: start: 201810

REACTIONS (6)
  - Nasopharyngitis [Unknown]
  - Incorrect drug administration rate [Unknown]
  - Urinary tract infection [Unknown]
  - Nasal congestion [Unknown]
  - Cystitis [Unknown]
  - Rhinorrhoea [Unknown]
